FAERS Safety Report 9009746 (Version 1)
Quarter: 2013Q1

REPORT INFORMATION
  Report Type: Spontaneous
  Country: US (occurrence: US)
  Receive Date: 20130110
  Receipt Date: 20130110
  Transmission Date: 20140127
  Serious: Yes (Other)
  Sender: FDA-Public Use
  Company Number: US-PFIZER INC-2013008874

PATIENT
  Age: 66 Year
  Sex: Female
  Weight: 88.44 kg

DRUGS (6)
  1. LYRICA [Suspect]
     Indication: BIPOLAR DISORDER
     Dosage: 200 MG, 2X/DAY
  2. LYRICA [Suspect]
     Dosage: 400 MG, IN THE ONE GO
  3. DIOVAN [Concomitant]
     Indication: HYPERTENSION
     Dosage: 80 MG, 1X/DAY
  4. LORAZEPAM [Concomitant]
     Indication: BIPOLAR DISORDER
     Dosage: 1 MG, 1X/DAY
  5. KLONOPIN [Concomitant]
     Indication: BIPOLAR DISORDER
     Dosage: 0.5 MG, 1X/DAY
  6. AMITRIPTYLINE [Concomitant]
     Indication: BIPOLAR DISORDER
     Dosage: 10 MG, 2X/DAY

REACTIONS (5)
  - Cataract [Unknown]
  - Visual acuity reduced [Unknown]
  - Weight increased [Unknown]
  - Off label use [Unknown]
  - Intentional drug misuse [Unknown]
